FAERS Safety Report 12632203 (Version 2)
Quarter: 2016Q3

REPORT INFORMATION
  Report Type: Spontaneous
  Country: US (occurrence: US)
  Receive Date: 20160808
  Receipt Date: 20160808
  Transmission Date: 20161109
  Serious: No
  Sender: FDA-Public Use
  Company Number: US-BEH-2016062156

PATIENT
  Sex: Female
  Weight: 64 kg

DRUGS (26)
  1. LORAZEPAM. [Concomitant]
     Active Substance: LORAZEPAM
  2. ZETIA [Concomitant]
     Active Substance: EZETIMIBE
  3. HIZENTRA [Suspect]
     Active Substance: HUMAN IMMUNOGLOBULIN G
     Indication: IMMUNODEFICIENCY COMMON VARIABLE
     Route: 058
     Dates: start: 20110411
  4. DIPHENHYDRAMINE. [Concomitant]
     Active Substance: DIPHENHYDRAMINE
  5. BUDESONIDE. [Concomitant]
     Active Substance: BUDESONIDE
  6. LANTUS [Concomitant]
     Active Substance: INSULIN GLARGINE
  7. LIDOCAINE. [Concomitant]
     Active Substance: LIDOCAINE
  8. OXYCONTIN [Concomitant]
     Active Substance: OXYCODONE HYDROCHLORIDE
  9. LOSARTAN. [Concomitant]
     Active Substance: LOSARTAN
  10. CLOTRIMAZOLE. [Concomitant]
     Active Substance: CLOTRIMAZOLE
  11. MIRALAX [Concomitant]
     Active Substance: POLYETHYLENE GLYCOL 3350
  12. LUMIGAN [Concomitant]
     Active Substance: BIMATOPROST
  13. ALBUTEROL. [Concomitant]
     Active Substance: ALBUTEROL
  14. PREDNISONE. [Concomitant]
     Active Substance: PREDNISONE
  15. AFRIN [Concomitant]
     Active Substance: OXYMETAZOLINE
  16. VICODIN [Concomitant]
     Active Substance: ACETAMINOPHEN\HYDROCODONE BITARTRATE
  17. EPIPEN [Concomitant]
     Active Substance: EPINEPHRINE
  18. RANITIDINE. [Concomitant]
     Active Substance: RANITIDINE
  19. GABAPENTIN. [Concomitant]
     Active Substance: GABAPENTIN
  20. DULCOLAX NOS [Concomitant]
     Active Substance: BISACODYL OR DOCUSATE SODIUM
  21. CITRACAL [Concomitant]
     Active Substance: CALCIUM CITRATE
  22. LISINOPRIL. [Concomitant]
     Active Substance: LISINOPRIL
  23. PROAIR HFA [Concomitant]
     Active Substance: ALBUTEROL SULFATE
  24. VALIUM [Concomitant]
     Active Substance: DIAZEPAM
  25. CHLORPHENIRAMINE. [Concomitant]
     Active Substance: CHLORPHENIRAMINE
  26. ASPIRIN. [Concomitant]
     Active Substance: ASPIRIN

REACTIONS (3)
  - Nodule [Unknown]
  - Unevaluable event [Unknown]
  - Contusion [Unknown]
